FAERS Safety Report 9122644 (Version 1)
Quarter: 2013Q1

REPORT INFORMATION
  Report Type: Spontaneous
  Country: US (occurrence: US)
  Receive Date: 20130114
  Receipt Date: 20130114
  Transmission Date: 20140127
  Serious: Yes (Other)
  Sender: FDA-Public Use
  Company Number: US-PFIZER INC-2013013313

PATIENT
  Age: 43 Year
  Sex: Female
  Weight: 71.66 kg

DRUGS (2)
  1. CELEBREX [Suspect]
     Indication: CANCER PAIN
     Dosage: 200 MG, 2X/DAY
     Dates: start: 20121209
  2. RITUXAN [Concomitant]
     Indication: CHEMOTHERAPY
     Dosage: UNK

REACTIONS (1)
  - Non-Hodgkin^s lymphoma [Unknown]
